FAERS Safety Report 6727891-3 (Version None)
Quarter: 2010Q2

REPORT INFORMATION
  Report Type: 
  Country: None (occurrence: None)
  Receive Date: 20100517
  Receipt Date: 20100506
  Transmission Date: 20101027
  Serious: Yes (Other)
  Sender: FDA-Public Use
  Company Number: US-JNJFOC-20100502091

PATIENT
  Sex: Female
  Weight: 68.49 kg

DRUGS (8)
  1. REMICADE [Suspect]
     Indication: CROHN'S DISEASE
     Route: 042
  2. REMICADE [Suspect]
     Route: 042
  3. MERCAPTOPURINE [Concomitant]
     Dosage: DOSE WAS DECREASED IN FEB-2010
  4. OMEPRAZOLE [Concomitant]
  5. ZYRTEC [Concomitant]
  6. PROBIOTICS [Concomitant]
  7. VITAMIN TAB [Concomitant]
  8. AGENT FOR CONSTIPATION [Concomitant]

REACTIONS (2)
  - GALLBLADDER DISORDER [None]
  - THROMBOCYTOPENIA [None]
